FAERS Safety Report 18754326 (Version 1)
Quarter: 2021Q1

REPORT INFORMATION
  Report Type: Other
  Country: CA (occurrence: CA)
  Receive Date: 20210119
  Receipt Date: 20210119
  Transmission Date: 20210419
  Serious: Yes (Other)
  Sender: FDA-Public Use
  Company Number: CA-CELLTRION INC.-2021CA000267

PATIENT

DRUGS (18)
  1. RITUXIMAB (UNKNOWN) [Suspect]
     Active Substance: RITUXIMAB
     Indication: RHEUMATOID ARTHRITIS
     Dosage: 1000 MG
     Route: 042
  2. CLARITHROMYCIN. [Concomitant]
     Active Substance: CLARITHROMYCIN
     Dosage: 250 MG
     Route: 048
  3. CODEINE [Concomitant]
     Active Substance: CODEINE
  4. ISONIAZID. [Concomitant]
     Active Substance: ISONIAZID
  5. DILTIAZEM HYDROCHLORIDE. [Concomitant]
     Active Substance: DILTIAZEM HYDROCHLORIDE
     Dosage: 120 MG
     Route: 048
  6. METHOTREXATE. [Concomitant]
     Active Substance: METHOTREXATE
     Dosage: 2.5 MG
     Route: 065
  7. PANTOLOC [PANTOPRAZOLE] [Concomitant]
     Active Substance: PANTOPRAZOLE SODIUM
     Dosage: 10 MG
     Route: 065
  8. CEFTRIAXONE SODIUM. [Concomitant]
     Active Substance: CEFTRIAXONE SODIUM
     Dosage: 1 GRAM
     Route: 065
  9. LYRICA [Concomitant]
     Active Substance: PREGABALIN
     Dosage: 50 MG, 2 EVERY 1 DAYS
     Route: 065
  10. METHYLPREDNISOLONE ACETATE. [Concomitant]
     Active Substance: METHYLPREDNISOLONE ACETATE
     Route: 065
  11. TIOTROPIUM BROMIDE [Concomitant]
     Active Substance: TIOTROPIUM BROMIDE
     Dosage: 18 MICROGRAM
     Route: 065
  12. TYLENOL [Concomitant]
     Active Substance: ACETAMINOPHEN
  13. METHYLPREDNISOLONE. [Concomitant]
     Active Substance: METHYLPREDNISOLONE
     Indication: PREMEDICATION
     Dosage: 100 MG
     Route: 048
  14. ACETAMINOPHEN. [Concomitant]
     Active Substance: ACETAMINOPHEN
     Indication: PREMEDICATION
     Dosage: 650 MG
     Route: 048
  15. FOLIC ACID. [Concomitant]
     Active Substance: FOLIC ACID
     Dosage: 5 MG, 1 EVERY 1 DAYS
     Route: 048
  16. APO?MELOXICAM [Concomitant]
     Active Substance: MELOXICAM
     Dosage: 7.5 MG
     Route: 065
  17. DIPHENHYDRAMINE HYDROCHLORIDE. [Concomitant]
     Active Substance: DIPHENHYDRAMINE HYDROCHLORIDE
     Indication: PREMEDICATION
     Dosage: 50 MG
     Route: 048
  18. VITAMIN B6 [Concomitant]
     Active Substance: PYRIDOXINE HYDROCHLORIDE

REACTIONS (8)
  - Peripheral swelling [Not Recovered/Not Resolved]
  - Rheumatoid arthritis [Not Recovered/Not Resolved]
  - Arthralgia [Not Recovered/Not Resolved]
  - Osteoarthritis [Not Recovered/Not Resolved]
  - Body temperature increased [Not Recovered/Not Resolved]
  - Blood pressure fluctuation [Not Recovered/Not Resolved]
  - Joint swelling [Not Recovered/Not Resolved]
  - Swelling face [Not Recovered/Not Resolved]
